FAERS Safety Report 11795236 (Version 1)
Quarter: 2015Q4

REPORT INFORMATION
  Report Type: Spontaneous
  Country: GB (occurrence: GB)
  Receive Date: 20151202
  Receipt Date: 20151202
  Transmission Date: 20160305
  Serious: Yes (Hospitalization)
  Sender: FDA-Public Use
  Company Number: GB-TEVA-610904ACC

PATIENT
  Age: 73 Year
  Sex: Female

DRUGS (19)
  1. OMEPRAZOLE. [Concomitant]
     Active Substance: OMEPRAZOLE
  2. SIMVASTATIN. [Concomitant]
     Active Substance: SIMVASTATIN
  3. SITAGLIPTIN [Concomitant]
     Active Substance: SITAGLIPTIN
  4. ANASTROZOLE. [Concomitant]
     Active Substance: ANASTROZOLE
  5. FUROSEMIDE. [Concomitant]
     Active Substance: FUROSEMIDE
  6. IPRATROPIUM [Concomitant]
     Active Substance: IPRATROPIUM
  7. PREDNISOLONE. [Suspect]
     Active Substance: PREDNISOLONE
     Indication: PNEUMONIA
     Dosage: 30 MILLIGRAM DAILY; IN THE MORNING
     Route: 048
     Dates: start: 20151028, end: 20151109
  8. PREDNISOLONE. [Suspect]
     Active Substance: PREDNISOLONE
     Indication: CHRONIC OBSTRUCTIVE PULMONARY DISEASE
  9. DILTIAZEM [Concomitant]
     Active Substance: DILTIAZEM
  10. SYMBICORT [Concomitant]
     Active Substance: BUDESONIDE\FORMOTEROL FUMARATE DIHYDRATE
  11. ASPIRIN. [Concomitant]
     Active Substance: ASPIRIN
  12. ENOXAPARIN [Concomitant]
     Active Substance: ENOXAPARIN
  13. RAMIPRIL. [Concomitant]
     Active Substance: RAMIPRIL
  14. LEVOFLOXACIN. [Concomitant]
     Active Substance: LEVOFLOXACIN
  15. ZOPICLONE [Concomitant]
     Active Substance: ZOPICLONE
  16. CALCICHEW D3 [Concomitant]
     Active Substance: CALCIUM\CHOLECALCIFEROL
  17. METRONIDAZOLE. [Concomitant]
     Active Substance: METRONIDAZOLE
  18. SALBUTAMOL [Concomitant]
     Active Substance: ALBUTEROL
  19. NYSTATIN. [Concomitant]
     Active Substance: NYSTATIN

REACTIONS (2)
  - Hyperglycaemia [Recovering/Resolving]
  - Empyema [Unknown]

NARRATIVE: CASE EVENT DATE: 20151102
